FAERS Safety Report 6538551 (Version 7)
Quarter: 2013Q3

REPORT INFORMATION
  Report Type: Spontaneous
  Country: FR (occurrence: FR)
  Receive Date: 20080130
  Receipt Date: 20130731
  Transmission Date: 20140515
  Serious: Yes (Hospitalization, Other)
  Sender: FDA-Public Use
  Company Number: FR-JNJFOC-20080106570

PATIENT
  Sex: Male

DRUGS (9)
  1. RISPERDAL CONSTA [Suspect]
     Indication: ABNORMAL BEHAVIOUR
     Route: 030
     Dates: start: 20050930, end: 20060413
  2. RISPERDAL CONSTA [Suspect]
     Indication: ABNORMAL BEHAVIOUR
     Route: 030
     Dates: start: 20060315, end: 200706
  3. AKINETON [Concomitant]
     Indication: PRODUCT USED FOR UNKNOWN INDICATION
     Route: 065
     Dates: start: 20060301
  4. AKINETON [Concomitant]
     Indication: PRODUCT USED FOR UNKNOWN INDICATION
     Route: 065
     Dates: start: 20050901
  5. RIVOTRIL [Concomitant]
     Indication: PRODUCT USED FOR UNKNOWN INDICATION
     Route: 065
  6. DEROXAT [Concomitant]
     Indication: PRODUCT USED FOR UNKNOWN INDICATION
     Route: 065
  7. XANAX [Concomitant]
     Indication: PRODUCT USED FOR UNKNOWN INDICATION
     Route: 065
  8. ZYPREXA [Concomitant]
     Indication: PRODUCT USED FOR UNKNOWN INDICATION
     Route: 065
  9. STILNOX TC [Concomitant]
     Indication: PRODUCT USED FOR UNKNOWN INDICATION
     Route: 065

REACTIONS (6)
  - Mental disorder [Recovered/Resolved]
  - Irritability [Recovered/Resolved]
  - Aggression [Recovered/Resolved]
  - Mental disorder [Recovered/Resolved]
  - Tobacco user [Recovered/Resolved]
  - Alcohol use [Recovered/Resolved]
